FAERS Safety Report 5101220-3 (Version None)
Quarter: 2006Q3

REPORT INFORMATION
  Report Type: 
  Country: None (occurrence: None)
  Receive Date: 20060911
  Receipt Date: 20060704
  Transmission Date: 20061208
  Serious: Yes (Other)
  Sender: FDA-Public Use
  Company Number: 2006SE03779

PATIENT
  Age: 69 Year
  Sex: Male

DRUGS (3)
  1. PROVISACOR [Suspect]
     Indication: HYPERCHOLESTEROLAEMIA
     Route: 048
     Dates: start: 20051031, end: 20060623
  2. CONTRAMAL [Concomitant]
     Indication: OSTEOARTHRITIS
     Route: 048
  3. SERETIDE [Concomitant]
     Indication: BRONCHITIS CHRONIC

REACTIONS (2)
  - PARAESTHESIA [None]
  - POLYNEUROPATHY [None]
